FAERS Safety Report 8560064-0 (Version None)
Quarter: 2012Q3

REPORT INFORMATION
  Report Type: 
  Country: None (occurrence: None)
  Receive Date: 20120723
  Receipt Date: 20120709
  Transmission Date: 20120928
  Serious: Yes (Other)
  Sender: FDA-Public Use
  Company Number: 2012IT0239

PATIENT
  Age: 28 Year
  Sex: Male

DRUGS (5)
  1. BACTRIM (SULFAMETOXAZOLE, TRIMETHOPRIM) [Concomitant]
  2. DELTA-CORTEF [Concomitant]
  3. ANAKINRA (ANAKINRA) [Suspect]
     Indication: JUVENILE ARTHRITIS
     Dosage: 100 MG (100 MG, 1 IN 1 D)
  4. INFLIXIMAB (INFLIXIMAB) [Concomitant]
  5. IG (IMMUNOGLOBULINS) [Concomitant]

REACTIONS (1)
  - HISTIOCYTOSIS HAEMATOPHAGIC [None]
